FAERS Safety Report 22518378 (Version 1)
Quarter: 2023Q2

REPORT INFORMATION
  Report Type: Other
  Country: FR (occurrence: None)
  Receive Date: 20230605
  Receipt Date: 20230605
  Transmission Date: 20230721
  Serious: Yes (Death, Other)
  Sender: FDA-Public Use
  Company Number: FR-ROCHE-3358549

PATIENT

DRUGS (2)
  1. RITUXIMAB [Suspect]
     Active Substance: RITUXIMAB
     Indication: Interstitial lung disease
     Dosage: ON DAY 1 AND DAY 15 FOR SIX MONTHS
     Route: 041
  2. MYCOPHENOLATE MOFETIL [Suspect]
     Active Substance: MYCOPHENOLATE MOFETIL
     Indication: Interstitial lung disease
     Dosage: FOR SIX MONTHS
     Route: 048

REACTIONS (13)
  - Acute respiratory failure [Fatal]
  - Pneumonia [Fatal]
  - Fibrosis [Fatal]
  - Anaphylactoid reaction [Unknown]
  - Respiratory disorder [Unknown]
  - Cardiac disorder [Unknown]
  - Sepsis [Unknown]
  - Urinary tract infection [Unknown]
  - Pneumonia [Unknown]
  - Influenza [Unknown]
  - Varicella [Unknown]
  - Infection [Unknown]
  - Infusion related reaction [Unknown]
